FAERS Safety Report 7343278-7 (Version None)
Quarter: 2011Q1

REPORT INFORMATION
  Report Type: 
  Country: None (occurrence: None)
  Receive Date: 20110301
  Receipt Date: 20110222
  Transmission Date: 20110831
  Serious: Yes (Life-Threatening, Hospitalization, Disabling)
  Sender: FDA-Public Use
  Company Number: UKP11000024

PATIENT
  Age: 16 Year
  Sex: Male
  Weight: 39.8 kg

DRUGS (4)
  1. ASACOL [Suspect]
     Indication: CROHN'S DISEASE
  2. PARACETAMOL [Concomitant]
  3. AZATHIOPRINE [Suspect]
     Indication: CROHN'S DISEASE
  4. HUMIRA [Suspect]
     Indication: CROHN'S DISEASE

REACTIONS (1)
  - TESTICULAR GERM CELL CANCER METASTATIC [None]
